FAERS Safety Report 9175722 (Version 1)
Quarter: 2012Q4

REPORT INFORMATION
  Report Type: Report from Study
  Country: US (occurrence: US)
  Receive Date: 20120913
  Receipt Date: 20120913
  Transmission Date: 20130627
  Serious: Yes (Hospitalization)
  Sender: FDA-Public Use
  Company Number: US-BIOMARINP-001925

PATIENT
  Age: 4 None
  Sex: Male
  Weight: 14 kg

DRUGS (10)
  1. NAGLAZYME [Suspect]
     Indication: MUCOPOLYSACCHARIDOSIS VI
     Route: 041
     Dates: start: 20090911
  2. GENERAL ANESTHESIA [Concomitant]
  3. MARCAINE [Concomitant]
  4. SENSORCAINE [Concomitant]
  5. HEPARIN [Concomitant]
  6. OXYGEN [Concomitant]
  7. ALBUTEROL [Concomitant]
  8. RACEMIC EPINEPHRINE [Concomitant]
  9. MORPHINE [Concomitant]
  10. DECADRON [Concomitant]

REACTIONS (7)
  - Stridor [Recovered/Resolved]
  - Infusion related reaction [Unknown]
  - Vomiting [None]
  - Wheezing [None]
  - Oxygen saturation decreased [None]
  - Cyanosis [None]
  - Central venous catheterisation [None]
